FAERS Safety Report 13376978 (Version 1)
Quarter: 2017Q1

REPORT INFORMATION
  Report Type: Spontaneous
  Country: US (occurrence: US)
  Receive Date: 20170327
  Receipt Date: 20170327
  Transmission Date: 20170429
  Serious: Yes (Disabling)
  Sender: FDA-Public Use
  Company Number: None

PATIENT
  Age: 58 Year
  Sex: Male
  Weight: 69.01 kg

DRUGS (3)
  1. DACLATASVIR. [Suspect]
     Active Substance: DACLATASVIR
  2. RIBAVIRIN. [Suspect]
     Active Substance: RIBAVIRIN
  3. SOFOSBUVIR [Suspect]
     Active Substance: SOFOSBUVIR

REACTIONS (1)
  - Obliterative bronchiolitis [None]

NARRATIVE: CASE EVENT DATE: 20160320
